FAERS Safety Report 14523985 (Version 1)
Quarter: 2018Q1

REPORT INFORMATION
  Report Type: Report from Study
  Country: CA (occurrence: CA)
  Receive Date: 20180213
  Receipt Date: 20180213
  Transmission Date: 20180509
  Serious: Yes (Hospitalization, Other)
  Sender: FDA-Public Use
  Company Number: CA-AMGEN-CANSL2018017190

PATIENT
  Age: 82 Year
  Sex: Female

DRUGS (1)
  1. XGEVA [Suspect]
     Active Substance: DENOSUMAB
     Indication: LUNG NEOPLASM MALIGNANT
     Dosage: 120 MG/1.70 ML, UNK
     Route: 065
     Dates: start: 20170712

REACTIONS (2)
  - Off label use [Unknown]
  - Hospitalisation [Unknown]
